FAERS Safety Report 23623493 (Version 3)
Quarter: 2024Q2

REPORT INFORMATION
  Report Type: Report from Study
  Country: US (occurrence: US)
  Receive Date: 20240312
  Receipt Date: 20240604
  Transmission Date: 20240716
  Serious: Yes (Hospitalization)
  Sender: FDA-Public Use
  Company Number: US-TAKEDA-2024TUS022078

PATIENT
  Sex: Male

DRUGS (1)
  1. MARIBAVIR [Suspect]
     Active Substance: MARIBAVIR
     Indication: Cytomegalovirus infection
     Dosage: 400 MILLIGRAM, BID
     Route: 048
     Dates: start: 20240203

REACTIONS (6)
  - Urinary tract infection [Unknown]
  - Eye disorder [Recovering/Resolving]
  - Product after taste [Unknown]
  - Headache [Unknown]
  - Fatigue [Unknown]
  - Dysgeusia [Unknown]
